FAERS Safety Report 5378434-0 (Version None)
Quarter: 2007Q3

REPORT INFORMATION
  Report Type: 
  Country: None (occurrence: None)
  Receive Date: 20070702
  Receipt Date: 20070702
  Transmission Date: 20080115
  Serious: Yes (Other)
  Sender: FDA-Public Use
  Company Number: None

PATIENT
  Age: 60 Year
  Sex: Male
  Weight: 81 kg

DRUGS (1)
  1. ZONISAMIDE [Suspect]
     Indication: PAIN
     Dosage: 100MG EVERY DAY PO
     Route: 048
     Dates: start: 20070509, end: 20070510

REACTIONS (1)
  - CHEST PAIN [None]
